FAERS Safety Report 7853494 (Version 2)
Quarter: 2014Q2

REPORT INFORMATION
  Report Type: Report from Study
  Country: ES (occurrence: ES)
  Receive Date: 20110314
  Receipt Date: 20140414
  Transmission Date: 20141212
  Serious: Yes (Hospitalization)
  Sender: FDA-Public Use
  Company Number: ES-ELI_LILLY_AND_COMPANY-ES201103000856

PATIENT
  Age: 44 Year
  Sex: Male
  Weight: 65 kg

DRUGS (8)
  1. TERIPARATIDE [Suspect]
     Indication: OSTEOPOROSIS
     Dosage: 20 UG, QD
     Route: 058
     Dates: start: 20100508
  2. TERIPARATIDE [Suspect]
     Dosage: 20 UG, QD
     Route: 058
     Dates: start: 20100508
  3. NEUROBION                          /00176001/ [Concomitant]
     Dosage: 2 TABLETS DAILY
     Route: 048
  4. ENALAPRIL [Concomitant]
     Indication: HYPERTENSION
     Dosage: 20 MG, DAILY (1/D)
     Route: 048
  5. SIMVASTATINA [Concomitant]
     Indication: DYSLIPIDAEMIA
     Dosage: 40 MG, DAILY (1/D)
     Route: 048
  6. CREON [Concomitant]
     Dosage: 4 TABLETS ORALLY
     Route: 048
  7. OMEPRAZOL [Concomitant]
     Dosage: 1 TABLET DAILY
     Route: 048
  8. ESIDREX [Concomitant]
     Dosage: 1 TABLET DAILY
     Route: 048
     Dates: start: 20110216

REACTIONS (3)
  - Perforated ulcer [Recovering/Resolving]
  - Feeling abnormal [Unknown]
  - Asthenia [Unknown]
